FAERS Safety Report 11749376 (Version 1)
Quarter: 2015Q4

REPORT INFORMATION
  Report Type: Spontaneous
  Country: US (occurrence: None)
  Receive Date: 20151116
  Receipt Date: 20151116
  Transmission Date: 20160304
  Serious: No
  Sender: FDA-Public Use
  Company Number: None

PATIENT
  Age: 71 Year
  Sex: Male

DRUGS (1)
  1. FIRMAGON [Suspect]
     Active Substance: DEGARELIX ACETATE
     Indication: NEOPLASM PROSTATE
     Dosage: ONE DOSE
     Route: 058
     Dates: start: 20151103, end: 20151103

REACTIONS (3)
  - Syringe issue [None]
  - Device related infection [None]
  - Injection site mass [None]

NARRATIVE: CASE EVENT DATE: 20151103
